FAERS Safety Report 9583428 (Version 1)
Quarter: 2013Q4

REPORT INFORMATION
  Report Type: Spontaneous
  Country: US (occurrence: US)
  Receive Date: 20131002
  Receipt Date: 20131002
  Transmission Date: 20140711
  Serious: No
  Sender: FDA-Public Use
  Company Number: US-AMGEN-USASP2013046951

PATIENT
  Age: 33 Year
  Sex: Female
  Weight: 65.76 kg

DRUGS (8)
  1. ENBREL [Suspect]
     Indication: PRODUCT USED FOR UNKNOWN INDICATION
     Dosage: 50 MG, QWK
     Route: 058
  2. MEDROL                             /00049601/ [Concomitant]
     Dosage: 8 MG, UNK
     Route: 048
  3. METHOTREXATE [Concomitant]
     Dosage: 2.5 MG, UNK
     Route: 048
  4. LAMICTAL [Concomitant]
     Dosage: 200 MG, UNK
     Route: 048
  5. PLAQUENIL                          /00072602/ [Concomitant]
     Dosage: 200 MG, UNK
     Route: 048
  6. FOLIC ACID [Concomitant]
     Dosage: UNK
     Route: 048
  7. IRON [Concomitant]
     Dosage: UNK
     Route: 048
  8. MULTIVITAMINS, PLAIN [Concomitant]
     Dosage: UNK
     Route: 048

REACTIONS (1)
  - Injection site erythema [Unknown]
